FAERS Safety Report 9520134 (Version 2)
Quarter: 2013Q4

REPORT INFORMATION
  Report Type: Report from Study
  Country: GB (occurrence: GB)
  Receive Date: 20130912
  Receipt Date: 20131108
  Transmission Date: 20140711
  Serious: Yes (Hospitalization)
  Sender: FDA-Public Use
  Company Number: GB-PFIZER INC-2013256415

PATIENT
  Age: 66 Year
  Sex: Male

DRUGS (2)
  1. CELECOXIB [Suspect]
     Indication: OSTEOARTHRITIS
     Dosage: 100 MG, 2X/DAY
     Route: 048
     Dates: start: 20120525
  2. EZETIMIBE [Concomitant]
     Dosage: 10 MG, 1X/DAY
     Dates: start: 20070806

REACTIONS (1)
  - Colitis [Recovered/Resolved with Sequelae]
